FAERS Safety Report 6676397-9 (Version None)
Quarter: 2010Q2

REPORT INFORMATION
  Report Type: 
  Country: None (occurrence: None)
  Receive Date: 20100412
  Receipt Date: 20100329
  Transmission Date: 20101027
  Serious: Yes (Hospitalization, Other)
  Sender: FDA-Public Use
  Company Number: PHHY2010CN21402

PATIENT
  Age: 29 Year
  Sex: Male

DRUGS (6)
  1. CARBAMAZEPINE [Suspect]
     Indication: CONVULSION
     Dosage: 0.1 G, BID
     Route: 048
  2. VALPROATE SODIUM [Interacting]
     Dosage: 0.2 G, BID
     Route: 048
  3. VALPROATE SODIUM [Interacting]
     Dosage: 0.2 G, TID
  4. PHENOBARBITAL TAB [Interacting]
     Dosage: 0.1 G, Q8H
     Route: 030
  5. DIAZEPAM [Concomitant]
     Indication: EPILEPSY
     Dosage: 10 MG
     Route: 042
  6. OXYGEN [Concomitant]

REACTIONS (11)
  - ABDOMINAL TENDERNESS [None]
  - ANTICONVULSANT DRUG LEVEL BELOW THERAPEUTIC [None]
  - ANTICONVULSANT DRUG LEVEL DECREASED [None]
  - DIPLOPIA [None]
  - DRUG INTERACTION [None]
  - DYSURIA [None]
  - EPILEPSY [None]
  - FLATULENCE [None]
  - GRAND MAL CONVULSION [None]
  - PERCUSSION TEST ABNORMAL [None]
  - URINARY RETENTION [None]
